FAERS Safety Report 7334350-6 (Version None)
Quarter: 2011Q1

REPORT INFORMATION
  Report Type: 
  Country: None (occurrence: None)
  Receive Date: 20110307
  Receipt Date: 20101225
  Transmission Date: 20110831
  Serious: No
  Sender: FDA-Public Use
  Company Number: US-KINGPHARMUSA00001-K201001549

PATIENT
  Age: 56 Year
  Sex: Male
  Weight: 68.027 kg

DRUGS (4)
  1. EMBEDA [Suspect]
     Indication: BACK PAIN
     Dosage: 30 MG, QD
     Route: 048
     Dates: start: 20101215, end: 20101225
  2. OXYCODONE [Suspect]
     Indication: PAIN
     Dosage: 15 MG, QID
     Dates: end: 20101225
  3. NIASPAN [Concomitant]
     Dosage: 2000 MG, QD
  4. AZOR [Concomitant]
     Indication: HYPERTENSION
     Dosage: 5MG/20MG QD

REACTIONS (2)
  - RASH GENERALISED [None]
  - SKIN BURNING SENSATION [None]
